FAERS Safety Report 25478206 (Version 2)
Quarter: 2025Q3

REPORT INFORMATION
  Report Type: Spontaneous
  Country: AU (occurrence: AU)
  Receive Date: 20250625
  Receipt Date: 20250707
  Transmission Date: 20251020
  Serious: Yes (Other)
  Sender: MYLAN
  Company Number: AU-MYLANLABS-2025M1051943

PATIENT
  Age: 50 Year
  Sex: Male

DRUGS (4)
  1. CLOZARIL [Suspect]
     Active Substance: CLOZAPINE
     Indication: Schizophrenia
  2. CLOZARIL [Suspect]
     Active Substance: CLOZAPINE
     Route: 048
  3. CLOZARIL [Suspect]
     Active Substance: CLOZAPINE
     Route: 048
  4. CLOZARIL [Suspect]
     Active Substance: CLOZAPINE

REACTIONS (3)
  - Influenza like illness [Recovering/Resolving]
  - Neutrophil count decreased [Recovered/Resolved]
  - White blood cell count decreased [Recovering/Resolving]

NARRATIVE: CASE EVENT DATE: 20250617
